FAERS Safety Report 7581822-5 (Version None)
Quarter: 2011Q2

REPORT INFORMATION
  Report Type: 
  Country: None (occurrence: None)
  Receive Date: 20110629
  Receipt Date: 20110621
  Transmission Date: 20111010
  Serious: Yes (Other)
  Sender: FDA-Public Use
  Company Number: US-RB-026345-11

PATIENT
  Age: 40 Year
  Sex: Female

DRUGS (1)
  1. BUPRENORPHINE HYDROCHLORIDE AND NALOXONE HYDROGHLORIDE [Suspect]
     Indication: DRUG DEPENDENCE
     Dosage: SUBLINGUAL FILM
     Route: 060
     Dates: start: 20110401

REACTIONS (5)
  - OFF LABEL USE [None]
  - MUSCLE TWITCHING [None]
  - CONVULSION [None]
  - RESTLESS LEGS SYNDROME [None]
  - HYPOKALAEMIA [None]
